FAERS Safety Report 8776393 (Version 1)
Quarter: 2012Q4

REPORT INFORMATION
  Report Type: 
  Country: GB (occurrence: GB)
  Receive Date: 20120910
  Receipt Date: 20120910
  Transmission Date: 20130627
  Serious: Yes (Hospitalization)
  Sender: FDA-Public Use
  Company Number: GB-BAYER-2012-091079

PATIENT
  Age: 73 Year
  Sex: Female
  Weight: 51 kg

DRUGS (5)
  1. ADALAT [Suspect]
     Dosage: 20 mg, UNK
  2. ADALAT [Suspect]
     Dosage: 10 mg, UNK
  3. BENDROFLUMETHIAZIDE [Suspect]
     Dosage: 2.5 mg, QD
     Dates: start: 20120306
  4. BENDROFLUMETHIAZIDE [Suspect]
     Dosage: Daily dose 5 mg
  5. DOSULEPIN [Suspect]
     Dosage: 25 mg, QD
     Dates: start: 2000, end: 20120317

REACTIONS (4)
  - Chest pain [Recovered/Resolved with Sequelae]
  - Nausea [Recovered/Resolved with Sequelae]
  - Atrial fibrillation [Recovered/Resolved with Sequelae]
  - Arrhythmia [Unknown]
